FAERS Safety Report 12844835 (Version 1)
Quarter: 2016Q4

REPORT INFORMATION
  Report Type: Spontaneous
  Country: IT (occurrence: IT)
  Receive Date: 20161013
  Receipt Date: 20161013
  Transmission Date: 20170207
  Serious: Yes (Other)
  Sender: FDA-Public Use
  Company Number: IT-TEVA-699805ACC

PATIENT

DRUGS (1)
  1. VALPROATE [Suspect]
     Active Substance: VALPROIC ACID
     Route: 064

REACTIONS (10)
  - Language disorder [Unknown]
  - Memory impairment [Unknown]
  - Intelligence test abnormal [Unknown]
  - Developmental delay [Unknown]
  - Foetal exposure during pregnancy [Unknown]
  - Autism [Unknown]
  - Speech disorder [Unknown]
  - Gait disturbance [Unknown]
  - Attention deficit/hyperactivity disorder [Unknown]
  - Mental impairment [Unknown]
